FAERS Safety Report 4547903-5 (Version None)
Quarter: 2005Q1

REPORT INFORMATION
  Report Type: 
  Country: None (occurrence: None)
  Receive Date: 20050110
  Receipt Date: 20041228
  Transmission Date: 20050727
  Serious: Yes (Life-Threatening, Hospitalization)
  Sender: FDA-Public Use
  Company Number: JP-JNJFOC-20041005650

PATIENT
  Sex: Male
  Weight: 48.5 kg

DRUGS (14)
  1. REMICADE [Suspect]
     Indication: CROHN'S DISEASE
     Dosage: 250 MG
     Route: 042
  2. RHEUMATREX [Concomitant]
  3. PENTASA [Concomitant]
     Dosage: 1.5-3 G
     Route: 049
  4. PENTASA [Concomitant]
     Indication: CROHN'S DISEASE
     Route: 049
  5. PREDONIN [Concomitant]
     Indication: CROHN'S DISEASE
     Dosage: 5-10 MG/DAY
     Route: 049
  6. FERO-GRADUMET [Concomitant]
     Dosage: 2 ?/DAY
     Route: 049
  7. FERO-GRADUMET [Concomitant]
     Route: 049
  8. ELENTAL [Concomitant]
  9. ELENTAL [Concomitant]
     Indication: CROHN'S DISEASE
     Dosage: 160-340 G
  10. ENTERAL NUTRITION [Concomitant]
  11. FESIN [Concomitant]
     Route: 042
  12. INTRALIPOS [Concomitant]
     Indication: MALNUTRITION
     Route: 042
  13. TAGAMET [Concomitant]
     Indication: GASTRITIS
  14. PURSENNID [Concomitant]
     Indication: CONSTIPATION

REACTIONS (4)
  - ARTHRALGIA [None]
  - BACK PAIN [None]
  - NEUROPATHY [None]
  - PARALYSIS [None]
